FAERS Safety Report 16570177 (Version 1)
Quarter: 2019Q3

REPORT INFORMATION
  Report Type: Report from Study
  Country: US (occurrence: US)
  Receive Date: 20190715
  Receipt Date: 20190715
  Transmission Date: 20191004
  Serious: Yes (Hospitalization, Disabling, Other)
  Sender: FDA-Public Use
  Company Number: US-SA-2019SA115684

PATIENT
  Age: 68 Year
  Sex: Male

DRUGS (8)
  1. HUMALOG [Concomitant]
     Active Substance: INSULIN LISPRO
     Dosage: UNK
  2. NOVOLIN [Concomitant]
     Active Substance: INSULIN HUMAN
     Dosage: 70 U
  3. INSULIN GLARGINE [Suspect]
     Active Substance: INSULIN GLARGINE
     Indication: TYPE 1 DIABETES MELLITUS
     Dosage: 36 U, QD
     Route: 058
     Dates: start: 1997
  4. INSULIN GLARGINE [Suspect]
     Active Substance: INSULIN GLARGINE
     Dosage: 4 U
  5. NORCO [Concomitant]
     Active Substance: ACETAMINOPHEN\HYDROCODONE BITARTRATE
  6. INSULIN ASPART [Suspect]
     Active Substance: INSULIN ASPART
     Indication: TYPE 1 DIABETES MELLITUS
     Dosage: 70 U, QD
     Route: 058
  7. FENTANYL. [Concomitant]
     Active Substance: FENTANYL
  8. NOVOLOG [Concomitant]
     Active Substance: INSULIN ASPART
     Dosage: UNK

REACTIONS (15)
  - Groin abscess [Recovered/Resolved]
  - Walking aid user [Not Recovered/Not Resolved]
  - Road traffic accident [Unknown]
  - Blood glucose decreased [Unknown]
  - Intentional dose omission [Recovered/Resolved]
  - Testicular oedema [Recovered/Resolved]
  - Hypertension [Not Recovered/Not Resolved]
  - Blood glucose increased [Unknown]
  - Off label use [Unknown]
  - Scrotal infection [Unknown]
  - Nervousness [Unknown]
  - Hypoacusis [Unknown]
  - Stress [Unknown]
  - Blood glucose fluctuation [Recovered/Resolved]
  - Inability to afford medication [Unknown]

NARRATIVE: CASE EVENT DATE: 1990
